FAERS Safety Report 5402737-4 (Version None)
Quarter: 2007Q3

REPORT INFORMATION
  Report Type: 
  Country: None (occurrence: None)
  Receive Date: 20070731
  Receipt Date: 20070731
  Transmission Date: 20080115
  Serious: Yes (Hospitalization, Other)
  Sender: FDA-Public Use
  Company Number: None

PATIENT
  Sex: Male

DRUGS (1)
  1. REVLIMID [Suspect]
     Indication: MULTIPLE MYELOMA
     Dosage: 25MG  EVERY OTHER DAY  PO
     Route: 048

REACTIONS (8)
  - ACUTE CORONARY SYNDROME [None]
  - ARTHRALGIA [None]
  - ATRIAL FIBRILLATION [None]
  - HERNIA REPAIR [None]
  - LOBAR PNEUMONIA [None]
  - MUSCLE SPASMS [None]
  - PRURITUS [None]
  - SMALL INTESTINAL OBSTRUCTION [None]
